FAERS Safety Report 9731832 (Version 3)
Quarter: 2014Q1

REPORT INFORMATION
  Report Type: Spontaneous
  Country: JP (occurrence: JP)
  Receive Date: 20131205
  Receipt Date: 20140103
  Transmission Date: 20141002
  Serious: Yes (Hospitalization, Other)
  Sender: FDA-Public Use
  Company Number: JP-MPIJNJ-2013JNJ000890

PATIENT
  Sex: 0

DRUGS (5)
  1. VELCADE [Suspect]
     Indication: PLASMA CELL MYELOMA
     Dosage: UNK
     Route: 042
     Dates: start: 20120625
  2. VELCADE [Suspect]
     Dosage: UNK
     Route: 058
     Dates: start: 20130905
  3. LENADEX [Concomitant]
     Indication: PLASMA CELL MYELOMA
     Dosage: UNK
     Route: 048
     Dates: start: 20120625
  4. LENADEX [Concomitant]
     Dosage: UNK
     Route: 048
     Dates: start: 20130905
  5. DECADRON                           /00016001/ [Concomitant]
     Indication: PLASMA CELL MYELOMA
     Dosage: 19.8 MG, UNK
     Route: 042
     Dates: start: 20131011

REACTIONS (4)
  - Depressed level of consciousness [Recovered/Resolved]
  - Convulsion [Unknown]
  - Meningioma [Unknown]
  - Neuropathy peripheral [Unknown]
